FAERS Safety Report 10998937 (Version 2)
Quarter: 2015Q2

REPORT INFORMATION
  Report Type: Report from Study
  Country: JP (occurrence: JP)
  Receive Date: 20150408
  Receipt Date: 20150521
  Transmission Date: 20150821
  Serious: Yes (Other)
  Sender: FDA-Public Use
  Company Number: JP-009507513-1504JPN002367

PATIENT
  Age: 62 Year
  Sex: Female

DRUGS (7)
  1. DIAZOXIDE CAPSULES 25 MG ^MSD^ [Suspect]
     Active Substance: DIAZOXIDE
     Dosage: 25 MG IN THE MORNING, 75 MG IN THE DAYTIME, 25 MG IN THE EVENING AND 75 MG AT NIGHT
     Route: 048
     Dates: start: 20141013, end: 20141014
  2. CRESTOR [Concomitant]
     Active Substance: ROSUVASTATIN CALCIUM
     Indication: DYSLIPIDAEMIA
     Dosage: 2.5 MG, QD; DEVIDED DOSE FREQUENCY UNKNOWN, FORMULATION: POR
     Route: 048
  3. DIAZOXIDE CAPSULES 25 MG ^MSD^ [Suspect]
     Active Substance: DIAZOXIDE
     Dosage: 0 MG IN THE MORNING, 50 MG IN THE DAYTIME, 0 MG IN THE EVENING AND 150 MG AT NIGHT
     Route: 048
     Dates: start: 20141022, end: 20141023
  4. DIAZOXIDE CAPSULES 25 MG ^MSD^ [Suspect]
     Active Substance: DIAZOXIDE
     Dosage: 0 MG IN THE MORNING, 100 MG IN THE DAYTIME, 0 MG IN THE EVENING AND 150 MG AT NIGHT
     Route: 048
     Dates: start: 20141021, end: 20141021
  5. AMLODIN (AMLODIPINE BESYLATE) [Concomitant]
     Active Substance: AMLODIPINE BESYLATE
     Indication: HYPERTENSION
     Dosage: 2.5 MG, QD; DEVIDED DOSE FREQUENCY UNKNOWN
     Route: 048
  6. DIAZOXIDE CAPSULES 25 MG ^MSD^ [Suspect]
     Active Substance: DIAZOXIDE
     Dosage: 150 MG, BID
     Route: 048
     Dates: start: 20141015, end: 20141020
  7. DIAZOXIDE CAPSULES 25 MG ^MSD^ [Suspect]
     Active Substance: DIAZOXIDE
     Indication: HYPOGLYCAEMIA
     Dosage: 25 MG IN THE MORNING, 50 MG IN THE DAYTIME, 25 MG IN THE EVENING AND 50 MG AT NIGHT
     Route: 048
     Dates: start: 20141010, end: 20141012

REACTIONS (4)
  - Platelet count decreased [Not Recovered/Not Resolved]
  - White blood cell count decreased [Not Recovered/Not Resolved]
  - Oedema [Not Recovered/Not Resolved]
  - Hepatic function abnormal [Recovering/Resolving]

NARRATIVE: CASE EVENT DATE: 20141012
